FAERS Safety Report 9820871 (Version 2)
Quarter: 2014Q2

REPORT INFORMATION
  Report Type: Spontaneous
  Country: JP (occurrence: JP)
  Receive Date: 20140116
  Receipt Date: 20140527
  Transmission Date: 20141212
  Serious: Yes (Other)
  Sender: FDA-Public Use
  Company Number: PHHY2014JP003155

PATIENT
  Age: 59 Year
  Sex: Male

DRUGS (8)
  1. TASIGNA [Suspect]
     Indication: CHRONIC MYELOID LEUKAEMIA
     Dosage: 300 MG, BID
     Route: 048
  2. METGLUCO [Concomitant]
     Dosage: 1500 MG, UNK
     Route: 048
  3. ALISRYTHM [Concomitant]
     Dosage: 100 MG, UNK
     Route: 048
  4. BIBITTOACE [Concomitant]
     Dosage: 2 MG, UNK
     Route: 048
  5. BIBITTOACE [Concomitant]
     Dosage: 2 MG, UNK
     Route: 048
  6. HIBON [Concomitant]
     Dosage: 120 MG, UNK
     Route: 048
  7. AMARYL [Concomitant]
     Dosage: 2 MG, UNK
     Route: 048
  8. MAGLAX [Concomitant]
     Dosage: 1980 MG, UNK
     Route: 048

REACTIONS (4)
  - Convulsion [Unknown]
  - Loss of consciousness [Recovered/Resolved]
  - Cognitive disorder [Unknown]
  - Memory impairment [Unknown]
